FAERS Safety Report 24696291 (Version 1)
Quarter: 2024Q4

REPORT INFORMATION
  Report Type: Spontaneous
  Country: NL (occurrence: NL)
  Receive Date: 20241204
  Receipt Date: 20241204
  Transmission Date: 20250114
  Serious: Yes (Other)
  Sender: CHATTEM
  Company Number: NL-OPELLA-2024OHG039886

PATIENT
  Age: 34 Year
  Sex: Female

DRUGS (2)
  1. LEVOCETIRIZINE DIHYDROCHLORIDE [Suspect]
     Active Substance: LEVOCETIRIZINE DIHYDROCHLORIDE
     Indication: Product used for unknown indication
     Dosage: 20 MG, QD
  2. XOLAIR [Suspect]
     Active Substance: OMALIZUMAB
     Indication: Chronic spontaneous urticaria
     Dates: start: 200101

REACTIONS (10)
  - Alopecia [Recovering/Resolving]
  - Arthropathy [Recovering/Resolving]
  - Quality of life decreased [Unknown]
  - Swelling [Unknown]
  - Pruritus [Unknown]
  - Chronic spontaneous urticaria [Unknown]
  - Myalgia [Recovering/Resolving]
  - Weight increased [Recovering/Resolving]
  - Therapeutic product effect incomplete [Recovering/Resolving]
  - Angioedema [Unknown]
